FAERS Safety Report 18889819 (Version 2)
Quarter: 2021Q1

REPORT INFORMATION
  Report Type: Report from Study
  Country: CR (occurrence: CR)
  Receive Date: 20210213
  Receipt Date: 20210224
  Transmission Date: 20210420
  Serious: Yes (Other)
  Sender: FDA-Public Use
  Company Number: NVSC2021CR030908

PATIENT
  Sex: Male

DRUGS (5)
  1. EUTIROX [Concomitant]
     Active Substance: LEVOTHYROXINE SODIUM
     Indication: PRODUCT USED FOR UNKNOWN INDICATION
     Dosage: 1 OF 50 MG, QD
     Route: 065
  2. EXELON [Suspect]
     Active Substance: RIVASTIGMINE TARTRATE
     Indication: DEMENTIA
     Dosage: 5 DF, QD, PATCH
     Route: 062
     Dates: start: 202101
  3. EXELON [Suspect]
     Active Substance: RIVASTIGMINE TARTRATE
     Dosage: 10 DF, QD, PATCH
     Route: 062
     Dates: start: 202102
  4. EXPANSIA [Concomitant]
     Indication: PRODUCT USED FOR UNKNOWN INDICATION
     Dosage: UNK, 1 OF 75 MG, AT LUNCH
     Route: 065
  5. EXELON [Suspect]
     Active Substance: RIVASTIGMINE TARTRATE
     Indication: COGNITIVE DISORDER
     Dosage: 4.5 MG, QD PATCH 5 (CM2)
     Route: 062
     Dates: start: 20210106, end: 20210205

REACTIONS (3)
  - Nightmare [Unknown]
  - Dementia Alzheimer^s type [Unknown]
  - Deafness [Unknown]
